FAERS Safety Report 7262338-2 (Version None)
Quarter: 2011Q1

REPORT INFORMATION
  Report Type: 
  Country: None (occurrence: None)
  Receive Date: 20110130
  Receipt Date: 20101129
  Transmission Date: 20110831
  Serious: No
  Sender: FDA-Public Use
  Company Number: US-ABBOTT-10P-163-0688118-00

PATIENT
  Sex: Female

DRUGS (3)
  1. HUMIRA [Suspect]
     Indication: PSORIASIS
     Dates: start: 20101026
  2. ZETIA [Concomitant]
     Indication: BLOOD CHOLESTEROL
  3. DALMANE [Concomitant]
     Indication: INSOMNIA
     Dosage: SLEEPING PILL AT NIGHT

REACTIONS (2)
  - PAIN [None]
  - PSORIASIS [None]
